FAERS Safety Report 4365711-5 (Version None)
Quarter: 2004Q2

REPORT INFORMATION
  Report Type: 
  Country: None (occurrence: None)
  Receive Date: 20040526
  Receipt Date: 20040526
  Transmission Date: 20050107
  Serious: Yes (Other)
  Sender: FDA-Public Use
  Company Number: None

PATIENT
  Age: 62 Year
  Sex: Male
  Weight: 136 kg

DRUGS (5)
  1. CUBICIN [Suspect]
     Indication: HAEMATOMA INFECTION
     Dates: start: 20040502, end: 20040514
  2. CUBICIN [Suspect]
     Indication: POST PROCEDURAL HAEMATOMA
     Dates: start: 20040502, end: 20040514
  3. ZESTRIL [Concomitant]
  4. CARDURA [Concomitant]
  5. LASIX [Concomitant]

REACTIONS (3)
  - PHOTOSENSITIVITY REACTION [None]
  - RASH PRURITIC [None]
  - RED BLOOD CELL SEDIMENTATION RATE INCREASED [None]
